FAERS Safety Report 4372453-9 (Version None)
Quarter: 2004Q2

REPORT INFORMATION
  Report Type: 
  Country: None (occurrence: None)
  Receive Date: 20040603
  Receipt Date: 20040514
  Transmission Date: 20050107
  Serious: No
  Sender: FDA-Public Use
  Company Number: 02100-USA-04-0197

PATIENT
  Age: 70 Year
  Sex: Female

DRUGS (2)
  1. CILOSTAZOL [Suspect]
     Indication: THROMBOSIS PROPHYLAXIS
     Dosage: 100 MG BID ORAL
     Route: 048
     Dates: start: 20030101, end: 20030101
  2. CILOSTAZOL [Suspect]
     Indication: THROMBOSIS PROPHYLAXIS
     Dosage: 100 MG BID ORAL
     Route: 048
     Dates: start: 20030101

REACTIONS (2)
  - HEPATIC FUNCTION ABNORMAL [None]
  - SICK SINUS SYNDROME [None]
